FAERS Safety Report 5943297-9 (Version None)
Quarter: 2008Q4

REPORT INFORMATION
  Report Type: 
  Country: None (occurrence: None)
  Receive Date: 20081106
  Receipt Date: 20081028
  Transmission Date: 20090506
  Serious: Yes (Congenital Anomaly)
  Sender: FDA-Public Use
  Company Number: PHHY2008ES27102

PATIENT

DRUGS (1)
  1. TASIGNA [Suspect]

REACTIONS (3)
  - ABORTION [None]
  - FOETAL MALFORMATION [None]
  - PATERNAL DRUGS AFFECTING FOETUS [None]
